FAERS Safety Report 10213717 (Version 1)
Quarter: 2014Q2

REPORT INFORMATION
  Report Type: Spontaneous
  Country: US (occurrence: None)
  Receive Date: 20140602
  Receipt Date: 20140602
  Transmission Date: 20141212
  Serious: Yes (Other)
  Sender: FDA-Public Use
  Company Number: None

PATIENT
  Age: 70 Year
  Sex: Male
  Weight: 76.2 kg

DRUGS (2)
  1. ZICAM NASAL GEL 0.05% MATRIXX INITIATIVES INC [Suspect]
     Indication: NASAL CONGESTION
     Route: 055
     Dates: start: 20140106, end: 20140406
  2. ZICAM NASAL GEL 0.05% MATRIXX INITIATIVES INC [Suspect]
     Indication: INFLUENZA
     Route: 055
     Dates: start: 20140106, end: 20140406

REACTIONS (4)
  - Ageusia [None]
  - Anosmia [None]
  - Product quality issue [None]
  - Nasal congestion [None]
